FAERS Safety Report 7050136-4 (Version None)
Quarter: 2010Q4

REPORT INFORMATION
  Report Type: 
  Country: None (occurrence: None)
  Receive Date: 20101018
  Receipt Date: 20101006
  Transmission Date: 20110411
  Serious: Yes (Other)
  Sender: FDA-Public Use
  Company Number: CA-MERCK-1010USA00788

PATIENT
  Age: 43 Year
  Sex: Female
  Weight: 48 kg

DRUGS (3)
  1. SINGULAIR [Suspect]
     Route: 065
  2. FIORINAL [Concomitant]
     Route: 065
  3. YASMIN [Concomitant]
     Route: 048

REACTIONS (8)
  - ABDOMINAL PAIN UPPER [None]
  - BLISTER INFECTED [None]
  - INTENTIONAL SELF-INJURY [None]
  - MIDDLE INSOMNIA [None]
  - NIGHTMARE [None]
  - RASH [None]
  - SLEEP PARALYSIS [None]
  - SUICIDAL IDEATION [None]
